FAERS Safety Report 23560678 (Version 2)
Quarter: 2024Q1

REPORT INFORMATION
  Report Type: Spontaneous
  Country: CA (occurrence: CA)
  Receive Date: 20240223
  Receipt Date: 20240321
  Transmission Date: 20240410
  Serious: Yes (Other)
  Sender: FDA-Public Use
  Company Number: CA-AstraZeneca-2024A040822

PATIENT
  Sex: Female

DRUGS (1)
  1. TRASTUZUMAB DERUXTECAN [Suspect]
     Active Substance: TRASTUZUMAB DERUXTECAN
     Indication: Breast cancer metastatic
     Dosage: UNK
     Route: 042
     Dates: start: 20231201

REACTIONS (3)
  - Appendicitis [Recovered/Resolved]
  - Vision blurred [Not Recovered/Not Resolved]
  - Administration site pain [Unknown]

NARRATIVE: CASE EVENT DATE: 20231203
